FAERS Safety Report 5401736-6 (Version None)
Quarter: 2007Q3

REPORT INFORMATION
  Report Type: 
  Country: None (occurrence: None)
  Receive Date: 20070731
  Receipt Date: 20070719
  Transmission Date: 20080115
  Serious: Yes (Other)
  Sender: FDA-Public Use
  Company Number: US-AMGEN-US227478

PATIENT
  Sex: Male
  Weight: 79.5 kg

DRUGS (1)
  1. ENBREL [Suspect]
     Indication: PSORIASIS
     Route: 058
     Dates: start: 20030814, end: 20070501

REACTIONS (6)
  - FATIGUE [None]
  - GAIT DISTURBANCE [None]
  - GAMMOPATHY [None]
  - HYPOAESTHESIA [None]
  - MUSCULAR WEAKNESS [None]
  - PARAESTHESIA [None]
